FAERS Safety Report 9308039 (Version 1)
Quarter: 2013Q2

REPORT INFORMATION
  Report Type: Spontaneous
  Country: US (occurrence: US)
  Receive Date: 20130524
  Receipt Date: 20130524
  Transmission Date: 20140414
  Serious: No
  Sender: FDA-Public Use
  Company Number: US-GLAXOSMITHKLINE-A0996283A

PATIENT
  Age: 66 Year
  Sex: Female

DRUGS (10)
  1. BACTROBAN [Suspect]
     Indication: APHTHOUS STOMATITIS
     Route: 061
     Dates: start: 20121003
  2. COD LIVER OIL [Concomitant]
  3. DILTIAZEM [Concomitant]
  4. SYNTHROID [Concomitant]
  5. EFFEXOR [Concomitant]
  6. OXYCONTIN [Concomitant]
  7. NEXIUM [Concomitant]
  8. MULTI-VITAMIN [Concomitant]
  9. FISH OIL [Concomitant]
  10. VYTORIN [Concomitant]

REACTIONS (1)
  - Incorrect route of drug administration [Unknown]
